FAERS Safety Report 4382924-7 (Version None)
Quarter: 2004Q2

REPORT INFORMATION
  Report Type: 
  Country: None (occurrence: None)
  Receive Date: 20040617
  Receipt Date: 20040604
  Transmission Date: 20050107
  Serious: Yes (Hospitalization, Disabling, Other)
  Sender: FDA-Public Use
  Company Number: 2004037805

PATIENT
  Age: 35 Year
  Sex: Female

DRUGS (3)
  1. ZOLOFT [Suspect]
     Indication: DEPRESSION
     Dosage: 50 MG (50 MG, 1 IN 1 D), ORAL
     Route: 048
     Dates: start: 20020101
  2. CLONAZEPAM [Suspect]
     Indication: ILL-DEFINED DISORDER
     Dosage: 6 MG (1.5 MG, 4 IN 1 D)
  3. SSRI (SSRI) [Suspect]
     Indication: ILL-DEFINED DISORDER

REACTIONS (12)
  - ATAXIA [None]
  - BACK PAIN [None]
  - BIPOLAR DISORDER [None]
  - DRUG EFFECT DECREASED [None]
  - FALL [None]
  - HALLUCINATION, AUDITORY [None]
  - INSOMNIA [None]
  - LOSS OF EMPLOYMENT [None]
  - PAIN IN EXTREMITY [None]
  - SCHIZOAFFECTIVE DISORDER [None]
  - SOMATOFORM DISORDER [None]
  - SUICIDAL IDEATION [None]
